FAERS Safety Report 7802051-3 (Version None)
Quarter: 2011Q4

REPORT INFORMATION
  Report Type: 
  Country: None (occurrence: None)
  Receive Date: 20111007
  Receipt Date: 20110930
  Transmission Date: 20120403
  Serious: Yes (Other)
  Sender: FDA-Public Use
  Company Number: US-PFIZER INC-2011233933

PATIENT
  Age: 58 Year
  Sex: Female
  Weight: 51.81 kg

DRUGS (3)
  1. REMODULIN [Suspect]
     Indication: COR PULMONALE CHRONIC
     Dosage: 129.6 UG/KG, (0.09 UG/KG, 1 IN 1 MIN)UNK
     Route: 058
     Dates: start: 20100825
  2. REVATIO [Suspect]
     Dosage: UNK
  3. AMBRISENTAN [Suspect]
     Dosage: UNK

REACTIONS (1)
  - SYNCOPE [None]
